FAERS Safety Report 25940830 (Version 1)
Quarter: 2025Q4

REPORT INFORMATION
  Report Type: Spontaneous
  Country: KR (occurrence: KR)
  Receive Date: 20251020
  Receipt Date: 20251020
  Transmission Date: 20260118
  Serious: Yes (Other)
  Sender: MYLAN
  Company Number: KR-MYLANLABS-2025M1087048

PATIENT
  Sex: Female

DRUGS (5)
  1. LYRICA [Suspect]
     Active Substance: PREGABALIN
     Indication: Product used for unknown indication
     Dosage: 1 DOSAGE FORM, QD
     Dates: start: 20220811, end: 20220816
  2. LYRICA [Suspect]
     Active Substance: PREGABALIN
     Dosage: UNK
  3. ACETAMINOPHEN\TRAMADOL HYDROCHLORIDE [Suspect]
     Active Substance: ACETAMINOPHEN\TRAMADOL HYDROCHLORIDE
     Indication: Product used for unknown indication
     Dosage: 1 DOSAGE FORM, BID
     Dates: start: 20220811, end: 20220910
  4. ACETAMINOPHEN\TRAMADOL HYDROCHLORIDE [Suspect]
     Active Substance: ACETAMINOPHEN\TRAMADOL HYDROCHLORIDE
     Dosage: UNK
  5. LAFUTIDINE [Concomitant]
     Active Substance: LAFUTIDINE
     Dosage: 1 DOSAGE FORM
     Dates: start: 20220811, end: 20220811

REACTIONS (1)
  - Anuria [Not Recovered/Not Resolved]

NARRATIVE: CASE EVENT DATE: 20220811
